FAERS Safety Report 13091301 (Version 2)
Quarter: 2017Q4

REPORT INFORMATION
  Report Type: Spontaneous
  Country: US (occurrence: US)
  Receive Date: 20170106
  Receipt Date: 20171010
  Transmission Date: 20180320
  Serious: No
  Sender: FDA-Public Use
  Company Number: US-JNJFOC-20161213040

PATIENT
  Age: 54 Year
  Sex: Female
  Weight: 68.04 kg

DRUGS (6)
  1. MOTRIN IB [Suspect]
     Active Substance: IBUPROFEN
     Indication: PAIN
     Route: 048
     Dates: start: 20161208, end: 20161208
  2. MOTRIN IB [Suspect]
     Active Substance: IBUPROFEN
     Indication: INFLAMMATION
     Route: 048
     Dates: start: 20161209
  3. MOTRIN IB [Suspect]
     Active Substance: IBUPROFEN
     Indication: SWELLING
     Route: 048
     Dates: start: 20161208, end: 20161208
  4. MOTRIN IB [Suspect]
     Active Substance: IBUPROFEN
     Indication: PAIN
     Route: 048
     Dates: start: 20161209
  5. MOTRIN IB [Suspect]
     Active Substance: IBUPROFEN
     Indication: INFLAMMATION
     Route: 048
     Dates: start: 20161208, end: 20161208
  6. MOTRIN IB [Suspect]
     Active Substance: IBUPROFEN
     Indication: SWELLING
     Route: 048
     Dates: start: 20161209

REACTIONS (3)
  - Product use in unapproved indication [Unknown]
  - Off label use [Unknown]
  - Therapeutic response unexpected [Unknown]
